FAERS Safety Report 9921375 (Version 1)
Quarter: 2014Q1

REPORT INFORMATION
  Report Type: Report from Study
  Country: CA (occurrence: CA)
  Receive Date: 20140225
  Receipt Date: 20140225
  Transmission Date: 20141002
  Serious: Yes (Other)
  Sender: FDA-Public Use
  Company Number: CA-JNJFOC-20140213562

PATIENT
  Age: 76 Year
  Sex: Female

DRUGS (5)
  1. SIMPONI [Suspect]
     Indication: RHEUMATOID ARTHRITIS
     Route: 058
     Dates: start: 20130822
  2. METHOTREXATE [Concomitant]
     Route: 065
  3. PREDNISONE [Concomitant]
     Route: 065
  4. AZITHROMYCIN [Concomitant]
     Route: 065
     Dates: start: 20140217
  5. AZITHROMYCIN [Concomitant]
     Route: 065
     Dates: start: 20140218, end: 20140221

REACTIONS (1)
  - Pneumonia [Not Recovered/Not Resolved]
